FAERS Safety Report 23539061 (Version 1)
Quarter: 2024Q1

REPORT INFORMATION
  Report Type: Spontaneous
  Country: CA (occurrence: None)
  Receive Date: 20240219
  Receipt Date: 20240219
  Transmission Date: 20240410
  Serious: Yes (Other)
  Sender: FDA-Public Use
  Company Number: CA-PFIZER INC-202400040817

PATIENT
  Age: 55 Year
  Sex: Female
  Weight: 66 kg

DRUGS (4)
  1. METHOTREXATE [Suspect]
     Active Substance: METHOTREXATE
     Indication: Crohn^s disease
  2. MESALAMINE [Suspect]
     Active Substance: MESALAMINE
     Indication: Crohn^s disease
  3. MESALAMINE [Suspect]
     Active Substance: MESALAMINE
     Indication: Crohn^s disease
  4. PREDNISONE [Suspect]
     Active Substance: PREDNISONE
     Indication: Crohn^s disease

REACTIONS (5)
  - Product use in unapproved indication [Unknown]
  - Product use in unapproved indication [Unknown]
  - Condition aggravated [Unknown]
  - Cough [Unknown]
  - Dizziness [Unknown]
